FAERS Safety Report 13997147 (Version 3)
Quarter: 2017Q4

REPORT INFORMATION
  Report Type: Spontaneous
  Country: AT (occurrence: AT)
  Receive Date: 20170921
  Receipt Date: 20171227
  Transmission Date: 20180321
  Serious: Yes (Other)
  Sender: FDA-Public Use
  Company Number: AT-PFIZER INC-2017404316

PATIENT
  Age: 90 Year
  Sex: Female
  Weight: 53 kg

DRUGS (9)
  1. LYRICA [Suspect]
     Active Substance: PREGABALIN
     Indication: GENERALISED ANXIETY DISORDER
     Dosage: (0-25MG-25MG-300MG)
     Route: 048
  2. VALSARTAN. [Concomitant]
     Active Substance: VALSARTAN
     Dosage: 80 MG, 1X/DAY (0-0-80)
  3. LERCANIDIPINE [Concomitant]
     Active Substance: LERCANIDIPINE
     Dosage: 10 MG, 1X/DAY (1-0-0)
  4. NEXIUM [Concomitant]
     Active Substance: ESOMEPRAZOLE MAGNESIUM
     Dosage: 40 MG, 1X/DAY (1-0-0)
  5. APRAXIN [Concomitant]
     Dosage: UNK
  6. CONCOR [Concomitant]
     Active Substance: BISOPROLOL FUMARATE
     Dosage: (2.5 MG-0-2.5MG)
  7. VALSARTAN HCT 160/12.5 [Concomitant]
     Dosage: 1 DF, 1X/DAY (160/12.5-0-0)
  8. TRITTICO [Interacting]
     Active Substance: TRAZODONE HYDROCHLORIDE
     Dosage: (25 MG-0-75 MG)
  9. PRAXITEN [Interacting]
     Active Substance: OXAZEPAM
     Dosage: (7.5MG-0-30MG)

REACTIONS (3)
  - Electrocardiogram QT prolonged [Recovered/Resolved]
  - Bradycardia [Recovered/Resolved]
  - Drug interaction [Recovered/Resolved]
